FAERS Safety Report 24118942 (Version 1)
Quarter: 2024Q3

REPORT INFORMATION
  Report Type: Spontaneous
  Country: NL (occurrence: NL)
  Receive Date: 20240722
  Receipt Date: 20240722
  Transmission Date: 20241017
  Serious: Yes (Hospitalization)
  Sender: ACCORD
  Company Number: None

PATIENT
  Age: 64 Year
  Sex: Male
  Weight: 58 kg

DRUGS (19)
  1. GEMCITABINE [Suspect]
     Active Substance: GEMCITABINE
     Indication: Non-small cell lung cancer
     Dosage: 2040
     Dates: start: 20240516
  2. CISPLATIN [Suspect]
     Active Substance: CISPLATIN
     Indication: Non-small cell lung cancer
     Dosage: 120MG
     Dates: start: 20240516
  3. FOLIC ACID [Concomitant]
     Active Substance: FOLIC ACID
     Dosage: TABLET, 0,5 MG (MILLIGRAM)
  4. SODIUM BICARBONATE [Concomitant]
     Active Substance: SODIUM BICARBONATE
     Dosage: TABLET, 500 MG (MILLIGRAM)
  5. PREDNISOLONE [Concomitant]
     Active Substance: PREDNISOLONE
     Dosage: TABLET, 5 MG (MILLIGRAM)
  6. LEFLUNOMIDE [Concomitant]
     Active Substance: LEFLUNOMIDE
     Dosage: TABLET, 20 MG (MILLIGRAM)
  7. SODIUM CHLORIDE [Concomitant]
     Active Substance: SODIUM CHLORIDE
     Dosage: SOLUTION FOR INFUSION, 9 MG/ML (MILLIGRAM PER MILLILITER)
  8. NORTRIPTYLINE [Concomitant]
     Active Substance: NORTRIPTYLINE
     Dosage: TABLET, 50 MG (MILLIGRAM)
  9. NEBIVOLOL [Concomitant]
     Active Substance: NEBIVOLOL
     Dosage: TABLET, 2.5 MG (MILLIGRAM)
  10. ASPIRIN [Concomitant]
     Active Substance: ASPIRIN
     Dosage: TABLET, 80 MG (MILLIGRAM)
  11. ATORVASTATIN [Concomitant]
     Active Substance: ATORVASTATIN
     Dosage: TABLET, 40 MG (MILLIGRAM)
  12. PANTOPRAZOLE SODIUM [Concomitant]
     Active Substance: PANTOPRAZOLE SODIUM
     Dosage: GASTRO-RESISTANT TABLET, 40 MG (MILLIGRAM)
  13. ACETAMINOPHEN [Concomitant]
     Active Substance: ACETAMINOPHEN
     Dosage: TABLET, 500 MG (MILLIGRAM)
  14. MAGNESIUM SULFATE [Concomitant]
     Active Substance: MAGNESIUM SULFATE\MAGNESIUM SULFATE HEPTAHYDRATE
     Dosage: SOLUTION FOR INFUSION, 10 MG/ML (MILLIGRAM PER MILLILITER)
  15. NADROPARIN [Concomitant]
     Active Substance: NADROPARIN
     Dosage: SOLUTION FOR INJECTION, 9500 IU/ML (UNITS PER MILLILITER)
  16. NINTEDANIB [Concomitant]
     Active Substance: NINTEDANIB
     Dosage: CAPSULE, 100 MG (MILLIGRAM)
  17. TAMSULOSIN [Concomitant]
     Active Substance: TAMSULOSIN
     Dosage: MODIFIED-RELEASE CAPSULE, 0.4 MG (MILLIGRAM)
  18. CALCIUM GLUCONATE [Concomitant]
     Active Substance: CALCIUM GLUCONATE
     Dosage: SOLUTION FOR INJECTION, 100 MG/ML (MILLIGRAMS PER MILLILITER)
  19. CALCIUM CARBONATE [Concomitant]
     Active Substance: CALCIUM CARBONATE
     Dosage: CHEWABLE TABLET, 1.25 G (GRAM)

REACTIONS (1)
  - Pancytopenia [Recovering/Resolving]
